FAERS Safety Report 8596757-9 (Version None)
Quarter: 2012Q3

REPORT INFORMATION
  Report Type: 
  Country: None (occurrence: None)
  Receive Date: 20120815
  Receipt Date: 20120807
  Transmission Date: 20120928
  Serious: Yes (Hospitalization)
  Sender: FDA-Public Use
  Company Number: BE-PFIZER INC-2012193540

PATIENT
  Sex: Female
  Weight: 108 kg

DRUGS (2)
  1. CABERGOLINE [Concomitant]
     Indication: NEOPLASM
     Dosage: UNK
     Dates: start: 20070529
  2. GENOTROPIN [Suspect]
     Dosage: 0.2 MG, 7/WK
     Route: 058
     Dates: start: 20070808

REACTIONS (1)
  - ENDOCRINE DISORDER [None]
